FAERS Safety Report 4390427-9 (Version None)
Quarter: 2004Q2

REPORT INFORMATION
  Report Type: 
  Country: None (occurrence: None)
  Receive Date: 20040630
  Receipt Date: 20040614
  Transmission Date: 20050107
  Serious: Yes (Hospitalization)
  Sender: FDA-Public Use
  Company Number: 173992

PATIENT
  Age: 28 Year
  Sex: Male

DRUGS (2)
  1. AVONEX [Suspect]
     Indication: MULTIPLE SCLEROSIS
     Dosage: 30 MCG QW IM
     Route: 030
  2. AVONEX [Suspect]
     Indication: MULTIPLE SCLEROSIS
     Dosage: 30 MCG QW IM
     Route: 030
     Dates: start: 20000101

REACTIONS (6)
  - CONVULSION [None]
  - DRUG HYPERSENSITIVITY [None]
  - DYSSTASIA [None]
  - FOOD ALLERGY [None]
  - MULTIPLE SCLEROSIS [None]
  - VISUAL DISTURBANCE [None]
